FAERS Safety Report 8500114-0 (Version None)
Quarter: 2012Q3

REPORT INFORMATION
  Report Type: 
  Country: None (occurrence: None)
  Receive Date: 20120710
  Receipt Date: 20120705
  Transmission Date: 20120928
  Serious: Yes (Death)
  Sender: FDA-Public Use
  Company Number: US-CELGENEUS-163-21880-12070682

PATIENT
  Sex: Female

DRUGS (4)
  1. CORDARONE [Concomitant]
     Route: 065
  2. REVLIMID [Suspect]
     Indication: MYELODYSPLASTIC SYNDROME
     Dosage: 10 MILLIGRAM
     Route: 048
     Dates: start: 20120515
  3. BUMETANIDE [Concomitant]
     Route: 065
  4. CUBICIN [Concomitant]
     Route: 065

REACTIONS (1)
  - DEATH [None]
